FAERS Safety Report 16001194 (Version 2)
Quarter: 2019Q1

REPORT INFORMATION
  Report Type: Report from Study
  Country: US (occurrence: US)
  Receive Date: 20190225
  Receipt Date: 20190320
  Transmission Date: 20190418
  Serious: Yes (Hospitalization)
  Sender: FDA-Public Use
  Company Number: US-PFIZER INC-2018452807

PATIENT
  Age: 79 Year
  Sex: Female

DRUGS (1)
  1. SUTENT [Suspect]
     Active Substance: SUNITINIB MALATE
     Indication: RENAL CELL CARCINOMA
     Dosage: 50 MG, CYCLIC (DAILY, 4 WEEKS, FOLLOWED BY 2 WEEKS OFF/ 28 DAYS, THEN 14 DAYS OFF)
     Route: 048
     Dates: start: 20181015, end: 20190203

REACTIONS (21)
  - Pruritus [Recovered/Resolved]
  - Nausea [Recovered/Resolved]
  - Platelet count decreased [Recovering/Resolving]
  - Lacrimation increased [Unknown]
  - Heart rate decreased [Unknown]
  - Cystitis [Recovered/Resolved]
  - Vomiting [Recovering/Resolving]
  - Diarrhoea [Recovering/Resolving]
  - Alopecia [Unknown]
  - Swelling face [Unknown]
  - Anaemia [Recovering/Resolving]
  - Haematochezia [Recovering/Resolving]
  - Cough [Unknown]
  - Stomatitis [Unknown]
  - Asthenia [Recovering/Resolving]
  - Oral pain [Unknown]
  - Epistaxis [Not Recovered/Not Resolved]
  - Hair texture abnormal [Unknown]
  - Fatigue [Recovering/Resolving]
  - Nasal discharge discolouration [Unknown]
  - Gastric ulcer [Recovering/Resolving]

NARRATIVE: CASE EVENT DATE: 2018
